FAERS Safety Report 11458404 (Version 1)
Quarter: 2015Q3

REPORT INFORMATION
  Report Type: Spontaneous
  Country: US (occurrence: US)
  Receive Date: 20150904
  Receipt Date: 20150904
  Transmission Date: 20151125
  Serious: Yes (Other)
  Sender: FDA-Public Use
  Company Number: US-TAKEDA-2014TUS005387

PATIENT

DRUGS (10)
  1. NOVOLOG [Concomitant]
     Active Substance: INSULIN ASPART
     Dosage: 5 IU, UNK
     Dates: start: 201007
  2. NOVOLOG [Concomitant]
     Active Substance: INSULIN ASPART
     Dosage: UNK
     Dates: start: 201008, end: 201312
  3. LANTUS [Concomitant]
     Active Substance: INSULIN GLARGINE
     Dosage: 34 IU, UNK
     Dates: start: 200603, end: 201103
  4. NOVOLOG [Concomitant]
     Active Substance: INSULIN ASPART
     Indication: DIABETES MELLITUS
     Dosage: 6 IU, TID
     Dates: start: 200603
  5. NOVOLOG [Concomitant]
     Active Substance: INSULIN ASPART
     Dosage: 12B 10L 14D; UNK
  6. ACTOS [Suspect]
     Active Substance: PIOGLITAZONE HYDROCHLORIDE
     Indication: TYPE 2 DIABETES MELLITUS
     Dosage: 15 MG, UNK
     Route: 048
     Dates: start: 200512, end: 201007
  7. LANTUS [Concomitant]
     Active Substance: INSULIN GLARGINE
     Dosage: 25 IU, UNK
     Dates: start: 200503, end: 200512
  8. LANTUS [Concomitant]
     Active Substance: INSULIN GLARGINE
     Dosage: 36 IU, UNK
  9. LANTUS [Concomitant]
     Active Substance: INSULIN GLARGINE
     Dosage: 32 IU, UNK
     Dates: start: 201104
  10. LANTUS [Concomitant]
     Active Substance: INSULIN GLARGINE
     Dosage: 35 IU, HS UNK
     Dates: start: 20120508

REACTIONS (1)
  - Bladder cancer [Unknown]

NARRATIVE: CASE EVENT DATE: 200512
